FAERS Safety Report 18356253 (Version 1)
Quarter: 2020Q4

REPORT INFORMATION
  Report Type: Spontaneous
  Country: US (occurrence: US)
  Receive Date: 20201007
  Receipt Date: 20201007
  Transmission Date: 20210114
  Serious: No
  Sender: FDA-Public Use
  Company Number: US-BAYER-2020-214751

PATIENT
  Age: 51 Year
  Sex: Female

DRUGS (1)
  1. ESTRADIOL HEMIHYDRATE [Suspect]
     Active Substance: ESTRADIOL HEMIHYDRATE
     Dosage: UNK
     Route: 062
     Dates: start: 202009

REACTIONS (3)
  - Therapeutic product effect incomplete [None]
  - Device adhesion issue [None]
  - Multiple use of single-use product [None]

NARRATIVE: CASE EVENT DATE: 202009
